FAERS Safety Report 11763572 (Version 1)
Quarter: 2015Q4

REPORT INFORMATION
  Report Type: Spontaneous
  Country: US (occurrence: US)
  Receive Date: 20151120
  Receipt Date: 20151120
  Transmission Date: 20160304
  Serious: No
  Sender: FDA-Public Use
  Company Number: US-ELI_LILLY_AND_COMPANY-US201302003334

PATIENT
  Age: 65 Year
  Sex: Male

DRUGS (3)
  1. WARFARIN [Concomitant]
     Active Substance: WARFARIN
  2. FORTEO [Suspect]
     Active Substance: TERIPARATIDE
     Dosage: 20 UG, QD
     Dates: start: 201303
  3. FORTEO [Suspect]
     Active Substance: TERIPARATIDE
     Indication: OSTEOPOROSIS
     Dosage: 20 UG, QD
     Dates: start: 20130105

REACTIONS (9)
  - Arthralgia [Unknown]
  - Medication error [Unknown]
  - Prothrombin time prolonged [Recovered/Resolved]
  - Underdose [Unknown]
  - Off label use [Recovered/Resolved]
  - Malaise [Unknown]
  - Headache [Unknown]
  - Pain [Unknown]
  - Prothrombin level decreased [Unknown]

NARRATIVE: CASE EVENT DATE: 201303
